FAERS Safety Report 8348871-0 (Version None)
Quarter: 2012Q2

REPORT INFORMATION
  Report Type: 
  Country: None (occurrence: None)
  Receive Date: 20120508
  Receipt Date: 20120425
  Transmission Date: 20120825
  Serious: Yes (Death, Other)
  Sender: FDA-Public Use
  Company Number: 2012-131

PATIENT
  Age: 53 Year
  Sex: Female
  Weight: 90 kg

DRUGS (6)
  1. AMBIEN [Concomitant]
  2. SIMVASTATIN [Concomitant]
  3. LANTUS [Concomitant]
  4. FAZACLO ODT [Suspect]
     Indication: SCHIZOPHRENIA
     Dosage: 450-650 MG, QD, ORAL
     Route: 048
     Dates: start: 20070212, end: 20120315
  5. LEVOTHYROXINE SODIUM [Concomitant]
  6. CAPTOPRIL [Concomitant]

REACTIONS (2)
  - FALL [None]
  - ANKLE FRACTURE [None]
